FAERS Safety Report 9204792 (Version 2)
Quarter: 2014Q1

REPORT INFORMATION
  Report Type: Spontaneous
  Country: US (occurrence: US)
  Receive Date: 20130402
  Receipt Date: 20140131
  Transmission Date: 20141002
  Serious: Yes (Other)
  Sender: FDA-Public Use
  Company Number: US-BAYER-2013-039225

PATIENT
  Age: 20 Year
  Sex: Female

DRUGS (8)
  1. YAZ [Suspect]
     Dosage: UNK
     Dates: start: 200801, end: 200803
  2. YASMIN [Suspect]
     Dosage: UNK
     Dates: start: 200801, end: 200803
  3. OCELLA [Suspect]
     Dosage: UNK
     Dates: start: 200801, end: 200803
  4. GIANVI [Suspect]
     Dosage: UNK
     Dates: start: 200801, end: 200803
  5. NAPROXEN [Concomitant]
     Dosage: 500 MG, UNK
     Route: 048
     Dates: start: 20110103
  6. CYCLOBENZAPRINE [Concomitant]
     Dosage: 10 MG, UNK
     Route: 048
     Dates: start: 20110103
  7. TRAMADOL HYDROCHLORIDE [Concomitant]
     Dosage: 50 MG, UNK
     Route: 048
     Dates: start: 20110103
  8. PRILOSEC [Concomitant]

REACTIONS (7)
  - Cholecystectomy [None]
  - Cholecystitis chronic [None]
  - Pain [None]
  - Injury [None]
  - Anxiety [None]
  - Anhedonia [None]
  - Fear of disease [None]
